FAERS Safety Report 19410826 (Version 1)
Quarter: 2021Q2

REPORT INFORMATION
  Report Type: Spontaneous
  Country: US (occurrence: US)
  Receive Date: 20210612
  Receipt Date: 20210612
  Transmission Date: 20210717
  Serious: Yes (Death, Hospitalization)
  Sender: FDA-Public Use
  Company Number: None

PATIENT
  Age: 81 Year
  Sex: Female
  Weight: 33 kg

DRUGS (10)
  1. CALTRATE [Concomitant]
     Active Substance: CALCIUM CARBONATE
  2. OXYCODONE [Concomitant]
     Active Substance: OXYCODONE
  3. COREG [Suspect]
     Active Substance: CARVEDILOL
     Dates: end: 20210512
  4. ACETAMINOPHEN. [Concomitant]
     Active Substance: ACETAMINOPHEN
  5. BENADRYLL [Concomitant]
  6. LETROZOLE. [Concomitant]
     Active Substance: LETROZOLE
  7. VITAMIN C [Concomitant]
     Active Substance: ASCORBIC ACID
  8. HYDROCODONE?ACETAMINOPHEN [Concomitant]
     Active Substance: ACETAMINOPHEN\HYDROCODONE
  9. OMEGA?3 (FISH OIL) [Concomitant]
  10. SEROQUEL [Concomitant]
     Active Substance: QUETIAPINE FUMARATE

REACTIONS (4)
  - Hip fracture [None]
  - Pneumonia [None]
  - Sepsis [None]
  - Fall [None]

NARRATIVE: CASE EVENT DATE: 20210513
